FAERS Safety Report 18689838 (Version 1)
Quarter: 2020Q4

REPORT INFORMATION
  Report Type: Spontaneous
  Country: HR (occurrence: HR)
  Receive Date: 20201231
  Receipt Date: 20201231
  Transmission Date: 20210114
  Serious: Yes (Other)
  Sender: FDA-Public Use
  Company Number: HR-ASTRAZENECA-2020SF72736

PATIENT
  Age: 22 Year
  Sex: Female

DRUGS (6)
  1. APAURIN [Suspect]
     Active Substance: DIAZEPAM
     Dosage: 20 APAURINA
     Route: 048
     Dates: start: 20201130, end: 20201130
  2. PRAZINE (ALPRAZOLAM) [Suspect]
     Active Substance: ALPRAZOLAM
     Route: 048
     Dates: start: 20201130, end: 20201130
  3. RIVOTRIL [Suspect]
     Active Substance: CLONAZEPAM
     Route: 048
     Dates: start: 20201130, end: 20201130
  4. QUETIAPIN [Suspect]
     Active Substance: QUETIAPINE
     Route: 048
     Dates: start: 20201130, end: 20201130
  5. DIAZEPAM. [Suspect]
     Active Substance: DIAZEPAM
     Dosage: 50 X
     Route: 048
     Dates: start: 20201130, end: 20201130
  6. FLUZEPAM (FLURAZEPAM HYDROCHLORIDE) [Suspect]
     Active Substance: FLURAZEPAM HYDROCHLORIDE
     Route: 048
     Dates: start: 20201130, end: 20201130

REACTIONS (4)
  - Unresponsive to stimuli [Unknown]
  - Intentional overdose [Unknown]
  - Suicide attempt [Unknown]
  - Miosis [Unknown]

NARRATIVE: CASE EVENT DATE: 20201130
